FAERS Safety Report 16685950 (Version 1)
Quarter: 2019Q3

REPORT INFORMATION
  Report Type: Spontaneous
  Country: US (occurrence: US)
  Receive Date: 20190809
  Receipt Date: 20190809
  Transmission Date: 20191004
  Serious: No
  Sender: FDA-Public Use
  Company Number: PHEH2019US032701

PATIENT
  Age: 73 Year
  Sex: Female

DRUGS (1)
  1. COSENTYX [Suspect]
     Active Substance: SECUKINUMAB
     Indication: PSORIASIS
     Dosage: 300 MG/KG, QMO
     Route: 058
     Dates: start: 20190307

REACTIONS (3)
  - Diarrhoea [Recovered/Resolved with Sequelae]
  - Inappropriate schedule of product administration [Recovered/Resolved with Sequelae]
  - Cough [Recovered/Resolved with Sequelae]
